FAERS Safety Report 8115409-2 (Version None)
Quarter: 2012Q1

REPORT INFORMATION
  Report Type: 
  Country: None (occurrence: None)
  Receive Date: 20120206
  Receipt Date: 20120124
  Transmission Date: 20120608
  Serious: Yes (Other)
  Sender: FDA-Public Use
  Company Number: CA-JNJFOC-20120108681

PATIENT
  Age: 59 Year
  Sex: Female
  Weight: 74.84 kg

DRUGS (4)
  1. TYLENOL W/ CODEINE NO. 3 [Suspect]
     Indication: NECK PAIN
     Route: 065
     Dates: start: 20050101
  2. TYLENOL-500 [Suspect]
     Indication: PAIN MANAGEMENT
     Route: 048
     Dates: start: 20050101
  3. NEXIUM [Concomitant]
     Indication: PRODUCT USED FOR UNKNOWN INDICATION
  4. TYLENOL-500 [Suspect]
     Indication: NECK PAIN
     Route: 048
     Dates: start: 20050101

REACTIONS (2)
  - HEPATIC CYST [None]
  - ABDOMINAL PAIN [None]
